FAERS Safety Report 14969919 (Version 4)
Quarter: 2018Q4

REPORT INFORMATION
  Report Type: Report from Study
  Country: CO (occurrence: CO)
  Receive Date: 20180604
  Receipt Date: 20181205
  Transmission Date: 20190204
  Serious: Yes (Hospitalization)
  Sender: FDA-Public Use
  Company Number: PHHY2018CO011253

PATIENT
  Sex: Female

DRUGS (2)
  1. REVOLADE [Suspect]
     Active Substance: ELTROMBOPAG
     Dosage: 75 MG, QD
     Route: 048
  2. REVOLADE [Suspect]
     Active Substance: ELTROMBOPAG
     Indication: IMMUNE THROMBOCYTOPENIC PURPURA
     Dosage: 50 MG, QD
     Route: 048

REACTIONS (9)
  - Venous thrombosis [Unknown]
  - Platelet count decreased [Unknown]
  - Depression [Recovered/Resolved]
  - Disease recurrence [Unknown]
  - Immune thrombocytopenic purpura [Unknown]
  - Thrombosis [Recovered/Resolved]
  - Swelling [Recovered/Resolved]
  - Cough [Unknown]
  - Chest pain [Recovered/Resolved]
